FAERS Safety Report 6927658-7 (Version None)
Quarter: 2010Q3

REPORT INFORMATION
  Report Type: 
  Country: None (occurrence: None)
  Receive Date: 20100816
  Receipt Date: 20100816
  Transmission Date: 20110219
  Serious: No
  Sender: FDA-Public Use
  Company Number: None

PATIENT
  Age: 47 Year
  Sex: Male

DRUGS (2)
  1. LISINOPRIL [Suspect]
     Dosage: 10MG
     Dates: start: 20100627, end: 20100628
  2. HYDRALAZINE UNKNOWN UNKNOWN [Suspect]
     Dosage: 10MG
     Dates: start: 20100628, end: 20100628

REACTIONS (1)
  - SWELLING FACE [None]
